FAERS Safety Report 7781379-X (Version None)
Quarter: 2011Q3

REPORT INFORMATION
  Report Type: 
  Country: None (occurrence: None)
  Receive Date: 20110927
  Receipt Date: 20110916
  Transmission Date: 20111222
  Serious: Yes (Disabling)
  Sender: FDA-Public Use
  Company Number: US-MERCK-1109USA01775

PATIENT
  Sex: Female

DRUGS (1)
  1. FOSAMAX [Suspect]
     Indication: BONE LOSS
     Route: 048
     Dates: start: 20060901, end: 20110701

REACTIONS (3)
  - ABASIA [None]
  - PAIN IN EXTREMITY [None]
  - PAIN [None]
